FAERS Safety Report 6530319-X (Version None)
Quarter: 2010Q1

REPORT INFORMATION
  Report Type: 
  Country: None (occurrence: None)
  Receive Date: 20100107
  Receipt Date: 20100105
  Transmission Date: 20100710
  Serious: Yes (Life-Threatening, Hospitalization)
  Sender: FDA-Public Use
  Company Number: FR-JNJFOC-20090201077

PATIENT
  Age: 46 Year
  Sex: Male

DRUGS (8)
  1. TAVANIC [Suspect]
     Indication: LUNG DISORDER
     Route: 042
  2. PENTACARINAT [Suspect]
     Indication: LUNG DISORDER
     Route: 042
  3. ROCEPHIN [Suspect]
     Indication: LUNG DISORDER
     Route: 042
  4. TRIFLUCAN [Suspect]
     Indication: LUNG DISORDER
     Route: 042
  5. ARIXTRA [Concomitant]
     Indication: PHLEBITIS
     Route: 058
  6. KALETRA [Concomitant]
     Indication: ANTIVIRAL TREATMENT
     Route: 048
  7. EPIVIR [Concomitant]
     Indication: ANTIVIRAL TREATMENT
     Route: 048
  8. VIDEX [Concomitant]
     Indication: ANTIVIRAL TREATMENT
     Route: 048

REACTIONS (4)
  - BRADYCARDIA [None]
  - HYPOTENSION [None]
  - HYPOTHERMIA [None]
  - SEPTIC SHOCK [None]
